FAERS Safety Report 5957937-1 (Version None)
Quarter: 2008Q4

REPORT INFORMATION
  Report Type: 
  Country: None (occurrence: None)
  Receive Date: 20081119
  Receipt Date: 20081110
  Transmission Date: 20090506
  Serious: Yes (Death, Hospitalization)
  Sender: FDA-Public Use
  Company Number: AU-AMGEN-US310919

PATIENT
  Sex: Male

DRUGS (24)
  1. ENBREL [Suspect]
     Indication: PUSTULAR PSORIASIS
     Dosage: LYOPHILIZED (25MG TWICE A WEEK)
     Route: 065
     Dates: start: 20041001
  2. RANITIDINE [Suspect]
  3. GAVISCON [Suspect]
  4. VENTOLIN [Suspect]
     Dosage: ^OCCASIONALLY^
     Dates: start: 20080101
  5. PANAMAX [Suspect]
  6. PREDNISOLONE [Suspect]
  7. MEPERIDINE HCL [Suspect]
  8. SUSTANON [Suspect]
     Indication: BLOOD TESTOSTERONE DECREASED
  9. VITAMIN B12 [Suspect]
  10. AMPHOTERICIN B [Suspect]
     Dosage: UNKNOWN
     Dates: start: 20080526
  11. AMPHOTERICIN B [Suspect]
     Dosage: UNKNOWN
     Dates: start: 20080101, end: 20080101
  12. AMPHOTERICIN B [Suspect]
     Dosage: UNKNOWN
     Dates: start: 20080101, end: 20080101
  13. MORPHINE [Suspect]
     Indication: PAIN
     Dosage: ^1.7MG PER DAY (GIVEN IN 4 SMALL BOLI AT 6-HOUR INTERVALS)^
     Route: 037
  14. MORPHINE [Suspect]
     Dosage: ^2.0MG PER DAY (GIVEN IN 4 SMALL BOLI AT 6-HOUR INTERVALS)^
     Route: 037
  15. MORPHINE [Suspect]
     Dosage: ^1.7MG PER DAY (GIVEN IN 4 SMALL BOLI AT 6-HOUR INTERVALS)^
     Route: 037
  16. CIALIS [Suspect]
     Indication: ERECTILE DYSFUNCTION
  17. BACLOFEN [Suspect]
     Indication: MUSCLE SPASMS
     Dosage: UNKNOWN
     Dates: start: 19930101, end: 19940101
  18. BACLOFEN [Suspect]
     Dosage: UNKNOWN
     Route: 048
     Dates: start: 20080101, end: 20080101
  19. OSTELIN [Suspect]
     Indication: VITAMIN D DEFICIENCY
  20. CALTRATE [Suspect]
     Indication: VITAMIN D DEFICIENCY
  21. MAGMIN [Suspect]
     Indication: MUSCLE SPASMS
  22. METFORMIN HCL [Suspect]
     Indication: TYPE 2 DIABETES MELLITUS
  23. DIAZEPAM [Suspect]
  24. ROXITHROMYCIN [Suspect]

REACTIONS (9)
  - DRUG EFFECT DECREASED [None]
  - NONSPECIFIC REACTION [None]
  - ORAL CANDIDIASIS [None]
  - PAIN [None]
  - PULMONARY FIBROSIS [None]
  - PYREXIA [None]
  - RESPIRATORY FAILURE [None]
  - STUPOR [None]
  - TACHYCARDIA [None]
